FAERS Safety Report 20068657 (Version 2)
Quarter: 2021Q4

REPORT INFORMATION
  Report Type: Spontaneous
  Country: US (occurrence: US)
  Receive Date: 20211115
  Receipt Date: 20211222
  Transmission Date: 20220303
  Serious: Yes (Death, Other)
  Sender: FDA-Public Use
  Company Number: US-JNJFOC-20211110542

PATIENT
  Age: 73 Year
  Sex: Male
  Weight: 75.9 kg

DRUGS (33)
  1. XARELTO [Suspect]
     Active Substance: RIVAROXABAN
     Indication: Deep vein thrombosis
     Dosage: 20 MG, UNK
     Route: 048
     Dates: start: 20210106, end: 20210110
  2. XARELTO [Suspect]
     Active Substance: RIVAROXABAN
     Indication: Cardiac failure congestive
     Dosage: UNK
  3. XARELTO [Suspect]
     Active Substance: RIVAROXABAN
     Indication: Atrial fibrillation
     Dosage: UNK
  4. XARELTO [Suspect]
     Active Substance: RIVAROXABAN
     Indication: Cerebrovascular accident prophylaxis
     Dosage: UNK
  5. XARELTO [Suspect]
     Active Substance: RIVAROXABAN
     Indication: Deep vein thrombosis
     Dosage: 20 MG, UNK
     Route: 048
     Dates: start: 20210106, end: 20210110
  6. XARELTO [Suspect]
     Active Substance: RIVAROXABAN
     Indication: Deep vein thrombosis
  7. XARELTO [Suspect]
     Active Substance: RIVAROXABAN
     Indication: Deep vein thrombosis
  8. XARELTO [Suspect]
     Active Substance: RIVAROXABAN
     Indication: Deep vein thrombosis
  9. ASPIRIN [Suspect]
     Active Substance: ASPIRIN
     Indication: Product used for unknown indication
     Dosage: 81 MG, QD
     Route: 048
     Dates: start: 20210106
  10. LASIX [Suspect]
     Active Substance: FUROSEMIDE
     Indication: Deep vein thrombosis
     Dosage: UNK
     Route: 065
  11. LASIX [Suspect]
     Active Substance: FUROSEMIDE
     Indication: Cardiac failure congestive
  12. LASIX [Suspect]
     Active Substance: FUROSEMIDE
     Indication: Atrial fibrillation
  13. HYDROCODONE BITARTRATE AND ACETAMINOPHEN [Suspect]
     Active Substance: ACETAMINOPHEN\HYDROCODONE BITARTRATE
     Indication: Deep vein thrombosis
     Route: 065
  14. HYDROCODONE BITARTRATE AND ACETAMINOPHEN [Suspect]
     Active Substance: ACETAMINOPHEN\HYDROCODONE BITARTRATE
     Indication: Cardiac failure congestive
     Route: 065
  15. HYDROCODONE BITARTRATE AND ACETAMINOPHEN [Suspect]
     Active Substance: ACETAMINOPHEN\HYDROCODONE BITARTRATE
     Indication: Atrial fibrillation
     Dosage: 81 MG, UNK
     Route: 048
     Dates: start: 20210106
  16. HYDROCODONE BITARTRATE AND ACETAMINOPHEN [Suspect]
     Active Substance: ACETAMINOPHEN\HYDROCODONE BITARTRATE
     Indication: Deep vein thrombosis
     Dosage: 650 MG, Q4HR
     Route: 048
  17. HYDROCODONE BITARTRATE AND ACETAMINOPHEN [Suspect]
     Active Substance: ACETAMINOPHEN\HYDROCODONE BITARTRATE
     Indication: Deep vein thrombosis
     Route: 048
  18. MAGNESIUM HYDROXIDE [Suspect]
     Active Substance: MAGNESIUM HYDROXIDE
     Indication: Product used for unknown indication
     Dosage: 30 ML, UNK
     Route: 048
  19. METOPROLOL [Concomitant]
     Active Substance: METOPROLOL
     Indication: Cardiac failure congestive
     Dosage: 25 MG, BID
     Route: 048
  20. AZITHROMYCIN [Concomitant]
     Active Substance: AZITHROMYCIN
     Indication: Pneumonia
     Dosage: 500 MG, UNK
     Route: 048
  21. ROCEPHIN [Concomitant]
     Active Substance: CEFTRIAXONE SODIUM
     Indication: Pneumonia
     Dosage: 1000 MG, UNK
     Route: 042
  22. ALBUTEROL\IPRATROPIUM [Concomitant]
     Active Substance: ALBUTEROL\IPRATROPIUM
     Dosage: 3 ML, UNK
  23. ALBUTEROL SULFATE [Concomitant]
     Active Substance: ALBUTEROL SULFATE
     Dosage: 2.5 MG, UNK
  24. BUDESONIDE [Concomitant]
     Active Substance: BUDESONIDE
     Dosage: .5 MG, BID
  25. SODIUM CHLORIDE [Concomitant]
     Active Substance: SODIUM CHLORIDE
     Dosage: 3 ML, UNK
     Route: 042
  26. LISINOPRIL [Concomitant]
     Active Substance: LISINOPRIL
     Dosage: 5 MG, UNK
     Route: 048
  27. GUAIFENESIN AND DEXTROMETHORPHAN [Concomitant]
     Active Substance: DEXTROMETHORPHAN\GUAIFENESIN
     Dosage: 5 ML, Q4HR
     Route: 048
  28. BENZONATATE [Concomitant]
     Active Substance: BENZONATATE
     Dosage: 200 MG, TID
     Route: 048
  29. BISACODYL [Concomitant]
     Active Substance: BISACODYL
     Dosage: 5 MG, PRN
     Route: 048
  30. FAMOTIDINE [Concomitant]
     Active Substance: FAMOTIDINE
     Dosage: 20 MG, UNK
     Route: 048
  31. MORPHINE SULFATE [Concomitant]
     Active Substance: MORPHINE SULFATE
     Dosage: 2 MG, Q4HR
     Route: 042
  32. ONDANSETRON HCL [Concomitant]
     Active Substance: ONDANSETRON HYDROCHLORIDE
     Dosage: 4 MG, UNK
     Route: 042
  33. ZOLPIDEM TARTRATE [Concomitant]
     Active Substance: ZOLPIDEM TARTRATE
     Dosage: 5 MG, UNK
     Route: 048

REACTIONS (2)
  - Sarcomatoid carcinoma of the lung [Fatal]
  - Pulmonary alveolar haemorrhage [Not Recovered/Not Resolved]

NARRATIVE: CASE EVENT DATE: 20210108
